FAERS Safety Report 19229070 (Version 1)
Quarter: 2021Q2

REPORT INFORMATION
  Report Type: Spontaneous
  Country: US (occurrence: US)
  Receive Date: 20210507
  Receipt Date: 20210507
  Transmission Date: 20210717
  Serious: Yes (Other)
  Sender: FDA-Public Use
  Company Number: US-SUN PHARMACEUTICAL INDUSTRIES LTD-2021R1-295328

PATIENT
  Age: 33 Year
  Sex: Female

DRUGS (6)
  1. METOPROLOL. [Suspect]
     Active Substance: METOPROLOL
     Indication: TACHYCARDIA FOETAL
     Dosage: 100 MILLIGRAM, DAILY
     Route: 048
  2. AMIODARONE [Suspect]
     Active Substance: AMIODARONE
     Indication: TACHYCARDIA FOETAL
     Dosage: 600 MILLIGRAM, DAILY
     Route: 048
  3. AMIODARONE [Suspect]
     Active Substance: AMIODARONE
     Dosage: 800 MILLIGRAM, DAILY
     Route: 048
  4. DIGOXIN. [Suspect]
     Active Substance: DIGOXIN
     Indication: TACHYCARDIA FOETAL
     Dosage: UNK (LOAD 500 MICROG X FETAL PERMANENT JUNCTIONAL RECIPROCATING TACHYCARDIA3 DOSES; MAINTAINANCE 250
     Route: 048
  5. SOTALOL. [Suspect]
     Active Substance: SOTALOL
     Indication: TACHYCARDIA FOETAL
     Dosage: 160 MILLIGRAM, BID
     Route: 048
  6. FLECAINIDE ACETATE. [Suspect]
     Active Substance: FLECAINIDE ACETATE
     Indication: TACHYCARDIA FOETAL
     Dosage: 150 MILLIGRAM, BID

REACTIONS (3)
  - Drug intolerance [Unknown]
  - Exposure during pregnancy [Unknown]
  - Premature delivery [Unknown]
